FAERS Safety Report 6773946-7 (Version None)
Quarter: 2010Q2

REPORT INFORMATION
  Report Type: 
  Country: None (occurrence: None)
  Receive Date: 20100617
  Receipt Date: 20100610
  Transmission Date: 20101027
  Serious: Yes (Other)
  Sender: FDA-Public Use
  Company Number: PHHY2009BR00958

PATIENT
  Age: 29 Year
  Sex: Female
  Weight: 61 kg

DRUGS (2)
  1. PARLODEL [Suspect]
     Dosage: 2 DF, QD (MORNING/NIGHT)
     Route: 048
     Dates: start: 20080101
  2. FOLIC ACID [Concomitant]
     Dosage: 5 MG
     Route: 048
     Dates: start: 20080901

REACTIONS (6)
  - DRUG EXPOSURE DURING PREGNANCY [None]
  - HEADACHE [None]
  - NEOPLASM PROGRESSION [None]
  - PROLACTINOMA [None]
  - VISION BLURRED [None]
  - WEIGHT DECREASED [None]
